FAERS Safety Report 25544419 (Version 1)
Quarter: 2025Q3

REPORT INFORMATION
  Report Type: Spontaneous
  Country: CA (occurrence: CA)
  Receive Date: 20250711
  Receipt Date: 20250711
  Transmission Date: 20251021
  Serious: Yes (Other)
  Sender: AMGEN
  Company Number: CA-AMGEN-CANSP2025133201

PATIENT
  Age: 79 Year
  Sex: Female

DRUGS (1)
  1. PROLIA [Suspect]
     Active Substance: DENOSUMAB
     Indication: Osteoporosis
     Route: 065
     Dates: start: 2015

REACTIONS (11)
  - Spinal fracture [Unknown]
  - Wrist fracture [Unknown]
  - Rib fracture [Unknown]
  - Fall [Unknown]
  - Oral pain [Unknown]
  - Gingival swelling [Unknown]
  - Head injury [Unknown]
  - Toothache [Unknown]
  - Weight decreased [Recovered/Resolved]
  - Pruritus [Unknown]
  - Asthenia [Unknown]

NARRATIVE: CASE EVENT DATE: 20240801
